FAERS Safety Report 24213035 (Version 1)
Quarter: 2024Q3

REPORT INFORMATION
  Report Type: Spontaneous
  Country: GB (occurrence: GB)
  Receive Date: 20240815
  Receipt Date: 20240815
  Transmission Date: 20241017
  Serious: Yes (Other)
  Sender: AMERICAN REGENT
  Company Number: GB-AMERICAN REGENT INC-2024003090

PATIENT
  Age: 45 Year
  Sex: Female

DRUGS (1)
  1. FERINJECT [Suspect]
     Active Substance: FERRIC CARBOXYMALTOSE
     Indication: Product used for unknown indication
     Dosage: UNK; TAKES THE INFUSION EVERY 3 MONTHS, STATES THE INFUSION WAS GIVEN OVER 20 MINS WHEN USUALLY ITS

REACTIONS (8)
  - Vision blurred [Recovered/Resolved]
  - Rash [Recovering/Resolving]
  - Dyspnoea [Recovered/Resolved]
  - Abdominal pain [Not Recovered/Not Resolved]
  - Dizziness [Recovered/Resolved]
  - Choking sensation [Unknown]
  - Dry throat [Unknown]
  - Palpitations [Unknown]

NARRATIVE: CASE EVENT DATE: 20240731
